FAERS Safety Report 22088313 (Version 2)
Quarter: 2023Q1

REPORT INFORMATION
  Report Type: Spontaneous
  Country: IT (occurrence: IT)
  Receive Date: 20230313
  Receipt Date: 20230315
  Transmission Date: 20230418
  Serious: Yes (Death)
  Sender: FDA-Public Use
  Company Number: IT-STRIDES ARCOLAB LIMITED-2023SP003618

PATIENT
  Age: 61 Year
  Sex: Female

DRUGS (1)
  1. PREDNISOLONE [Suspect]
     Active Substance: PREDNISOLONE
     Indication: Prophylaxis
     Dosage: 20 MILLIGRAM (PER DAY)
     Route: 065

REACTIONS (4)
  - Respiratory failure [Fatal]
  - Pulmonary nocardiosis [Fatal]
  - Aspergillus infection [Fatal]
  - Drug ineffective [Fatal]
